FAERS Safety Report 8141287-1 (Version None)
Quarter: 2012Q1

REPORT INFORMATION
  Report Type: 
  Country: None (occurrence: None)
  Receive Date: 20120216
  Receipt Date: 20120207
  Transmission Date: 20120608
  Serious: Yes (Other)
  Sender: FDA-Public Use
  Company Number: US-ROCHE-793779

PATIENT
  Sex: Female
  Weight: 50.848 kg

DRUGS (2)
  1. ACCUTANE [Suspect]
     Indication: ACNE
     Route: 065
  2. ACCUTANE [Suspect]

REACTIONS (7)
  - INFLAMMATORY BOWEL DISEASE [None]
  - RECTAL POLYP [None]
  - DEPRESSION [None]
  - CROHN'S DISEASE [None]
  - INTESTINAL OBSTRUCTION [None]
  - BACK PAIN [None]
  - EMOTIONAL DISTRESS [None]
